FAERS Safety Report 6516277-2 (Version None)
Quarter: 2009Q4

REPORT INFORMATION
  Report Type: 
  Country: None (occurrence: None)
  Receive Date: 20091223
  Receipt Date: 20091218
  Transmission Date: 20100525
  Serious: Yes (Life-Threatening)
  Sender: FDA-Public Use
  Company Number: JP-ROCHE-673047

PATIENT
  Age: 73 Year
  Sex: Female
  Weight: 74 kg

DRUGS (4)
  1. HERCEPTIN [Suspect]
     Indication: BREAST CANCER
     Route: 041
     Dates: start: 20090917, end: 20090917
  2. HERCEPTIN [Suspect]
     Route: 041
     Dates: end: 20091119
  3. DOCETAXEL [Concomitant]
     Dosage: DRUG NAME: DOCETAXEL HYDRATE
     Route: 041
     Dates: start: 20090924, end: 20090924
  4. DOCETAXEL [Concomitant]
     Route: 041
     Dates: end: 20091105

REACTIONS (1)
  - ATRIOVENTRICULAR BLOCK COMPLETE [None]
